FAERS Safety Report 17493317 (Version 1)
Quarter: 2020Q1

REPORT INFORMATION
  Report Type: Spontaneous
  Country: US (occurrence: US)
  Receive Date: 20200303
  Receipt Date: 20200303
  Transmission Date: 20200409
  Serious: No
  Sender: FDA-Public Use
  Company Number: US-AMNEAL PHARMACEUTICALS-2019-IPXL-00693

PATIENT
  Age: 63 Year
  Sex: Female
  Weight: 72 kg

DRUGS (8)
  1. RYTARY [Suspect]
     Active Substance: CARBIDOPA\LEVODOPA
     Dosage: 1 DOSAGE FORM, BID, IN SECOND WEEK
     Route: 048
  2. RYTARY [Suspect]
     Active Substance: CARBIDOPA\LEVODOPA
     Indication: PARKINSON^S DISEASE
     Dosage: 1 DOSAGE FORM, IN FIRST WEEK
     Route: 048
     Dates: start: 201902
  3. ANASTRAZOLE DENK [Concomitant]
     Active Substance: ANASTROZOLE
     Indication: NEOPLASM MALIGNANT
     Dosage: 1 MILLIGRAM, QD
     Route: 048
  4. ROSUVASTATIN. [Concomitant]
     Active Substance: ROSUVASTATIN
     Indication: BLOOD CHOLESTEROL INCREASED
     Dosage: 10 MILLIGRAM, QD
     Route: 048
  5. RYTARY [Suspect]
     Active Substance: CARBIDOPA\LEVODOPA
     Dosage: 1 DOSAGE FORM, TID, THIRD WEEK
     Route: 048
     Dates: end: 20190310
  6. LOSARTAN. [Concomitant]
     Active Substance: LOSARTAN
     Indication: HYPERTENSION
     Dosage: 50 MILLIGRAM, BID
     Route: 048
  7. IBANDRONATE [Concomitant]
     Active Substance: IBANDRONATE SODIUM
     Indication: NEOPLASM MALIGNANT
     Dosage: 1 DOSAGE FORM, 1 /MONTH
     Route: 042
  8. CALCIUM WITH D3 [Concomitant]
     Indication: MINERAL SUPPLEMENTATION
     Dosage: 1 DOSAGE FORM, BID, 600MG/800 IU
     Route: 048

REACTIONS (1)
  - Therapy cessation [Unknown]

NARRATIVE: CASE EVENT DATE: 20190311
